FAERS Safety Report 19212043 (Version 2)
Quarter: 2021Q2

REPORT INFORMATION
  Report Type: Spontaneous
  Country: US (occurrence: US)
  Receive Date: 20210504
  Receipt Date: 20210511
  Transmission Date: 20210717
  Serious: Yes (Hospitalization, Other)
  Sender: FDA-Public Use
  Company Number: US-ROCHE-2822801

PATIENT
  Age: 62 Year
  Sex: Male
  Weight: 88.08 kg

DRUGS (7)
  1. ALECENSA [Suspect]
     Active Substance: ALECTINIB HYDROCHLORIDE
     Indication: LUNG NEOPLASM MALIGNANT
     Dosage: 3 TABLETS 1 TIME PER DAY
     Route: 048
     Dates: start: 2020
  2. AVASTIN [Suspect]
     Active Substance: BEVACIZUMAB
     Indication: PRODUCT USED FOR UNKNOWN INDICATION
     Route: 042
     Dates: start: 202010
  3. KEPPRA [Concomitant]
     Active Substance: LEVETIRACETAM
  4. VANCOMYCIN [Concomitant]
     Active Substance: VANCOMYCIN
  5. CORTISONE [Concomitant]
     Active Substance: CORTISONE
  6. BRIGATINIB [Concomitant]
     Active Substance: BRIGATINIB
  7. VANCONIN [Concomitant]

REACTIONS (15)
  - Myalgia [Recovered/Resolved]
  - Muscle spasms [Not Recovered/Not Resolved]
  - Arthritis [Not Recovered/Not Resolved]
  - Pain [Not Recovered/Not Resolved]
  - Asthenia [Not Recovered/Not Resolved]
  - Autoimmune arthritis [Not Recovered/Not Resolved]
  - Skin atrophy [Not Recovered/Not Resolved]
  - Muscular weakness [Recovered/Resolved]
  - Fatigue [Not Recovered/Not Resolved]
  - Off label use [Unknown]
  - Radiation necrosis [Not Recovered/Not Resolved]
  - Stomatitis [Not Recovered/Not Resolved]
  - Seizure [Unknown]
  - Clostridium difficile infection [Not Recovered/Not Resolved]
  - Dysphonia [Not Recovered/Not Resolved]

NARRATIVE: CASE EVENT DATE: 202005
